FAERS Safety Report 11461449 (Version 1)
Quarter: 2015Q3

REPORT INFORMATION
  Report Type: Spontaneous
  Country: US (occurrence: US)
  Receive Date: 20150831
  Receipt Date: 20150831
  Transmission Date: 20151125
  Serious: No
  Sender: FDA-Public Use
  Company Number: US-ELI_LILLY_AND_COMPANY-US201006004645

PATIENT
  Sex: Female

DRUGS (6)
  1. SOMA [Concomitant]
     Active Substance: CARISOPRODOL
     Dosage: 350 MG, 2/D
     Route: 048
  2. VICODIN [Concomitant]
     Active Substance: ACETAMINOPHEN\HYDROCODONE BITARTRATE
     Dosage: 10 MG, AS NEEDED
     Route: 048
  3. CYMBALTA [Suspect]
     Active Substance: DULOXETINE HYDROCHLORIDE
     Indication: FIBROMYALGIA
     Dosage: 60 MG, DAILY (1/D)
     Route: 048
  4. VICODIN [Concomitant]
     Active Substance: ACETAMINOPHEN\HYDROCODONE BITARTRATE
     Dosage: 5 MG, AS NEEDED
     Route: 048
  5. VALIUM [Concomitant]
     Active Substance: DIAZEPAM
     Indication: MUSCLE SPASMS
     Dosage: 5 MG, EACH EVENING
     Route: 048
  6. BENADRYL [Concomitant]
     Active Substance: DIPHENHYDRAMINE HYDROCHLORIDE
     Indication: INSOMNIA

REACTIONS (23)
  - Speech disorder [Unknown]
  - Pain [Unknown]
  - Chills [Unknown]
  - Nightmare [Unknown]
  - Arthralgia [Unknown]
  - Muscle spasms [Unknown]
  - Insomnia [Unknown]
  - Anxiety [Unknown]
  - Abdominal discomfort [Unknown]
  - Crying [Unknown]
  - Vertigo [Unknown]
  - Chest pain [Unknown]
  - Dyspepsia [Unknown]
  - Influenza like illness [Unknown]
  - Malaise [Unknown]
  - Irritability [Unknown]
  - Depression [Unknown]
  - Paraesthesia [Unknown]
  - Hyperhidrosis [Unknown]
  - Myalgia [Unknown]
  - Drug withdrawal syndrome [Unknown]
  - Sleep apnoea syndrome [Unknown]
  - Nausea [Unknown]
